FAERS Safety Report 9445845 (Version 3)
Quarter: 2013Q4

REPORT INFORMATION
  Report Type: Spontaneous
  Country: US (occurrence: US)
  Receive Date: 20130807
  Receipt Date: 20131203
  Transmission Date: 20140711
  Serious: Yes (Death, Other)
  Sender: FDA-Public Use
  Company Number: US-BRISTOL-MYERS SQUIBB COMPANY-19159599

PATIENT
  Age: 60 Year
  Sex: Male

DRUGS (5)
  1. BARACLUDE [Suspect]
     Indication: HEPATITIS B
     Dates: start: 20130417
  2. IMMODIUM [Concomitant]
  3. FUROSEMIDE [Concomitant]
     Dates: start: 20130403, end: 20130628
  4. SORAFENIB [Concomitant]
     Dates: start: 20130417, end: 20130628
  5. SPIRONOLACTONE [Concomitant]
     Dates: start: 20130403, end: 20130628

REACTIONS (2)
  - Hepatic cancer [Fatal]
  - Hepatic failure [Unknown]
